FAERS Safety Report 8486887-4 (Version None)
Quarter: 2012Q3

REPORT INFORMATION
  Report Type: 
  Country: None (occurrence: None)
  Receive Date: 20120704
  Receipt Date: 20120628
  Transmission Date: 20120928
  Serious: Yes (Hospitalization)
  Sender: FDA-Public Use
  Company Number: US-AMGEN-USASP2012040141

PATIENT
  Age: 75 Year
  Sex: Female

DRUGS (1)
  1. ENBREL [Suspect]
     Indication: RHEUMATOID ARTHRITIS
     Dosage: 25 MG, QWK
     Dates: start: 19980101

REACTIONS (5)
  - THROMBOSIS [None]
  - CORNEAL INFECTION [None]
  - RHEUMATOID ARTHRITIS [None]
  - CORNEAL ABRASION [None]
  - DRY EYE [None]
